FAERS Safety Report 16655368 (Version 3)
Quarter: 2019Q3

REPORT INFORMATION
  Report Type: Spontaneous
  Country: JP (occurrence: JP)
  Receive Date: 20190801
  Receipt Date: 20190830
  Transmission Date: 20191004
  Serious: Yes (Death)
  Sender: FDA-Public Use
  Company Number: JP-B.I. PHARMACEUTICALS,INC./RIDGEFIELD-2019-NB-003532

PATIENT
  Age: 74 Year
  Sex: Male

DRUGS (3)
  1. BAKTAR [Suspect]
     Active Substance: SULFAMETHOXAZOLE\TRIMETHOPRIM
     Indication: INFECTION PROPHYLAXIS
     Dosage: UNIT AND DAILY DOSE: 0.5 (UNIT NOT REPORTED)/DAY
     Route: 048
     Dates: start: 20190612, end: 20190718
  2. OFEV [Suspect]
     Active Substance: NINTEDANIB
     Indication: IDIOPATHIC PULMONARY FIBROSIS
     Route: 048
     Dates: start: 20190612, end: 20190718
  3. PREDONINE [Concomitant]
     Active Substance: PREDNISOLONE
     Indication: PRODUCT USED FOR UNKNOWN INDICATION
     Route: 048
     Dates: start: 20190612, end: 20190718

REACTIONS (4)
  - Granulocytopenia [Fatal]
  - Cerebral infarction [Fatal]
  - Neutrophil count decreased [Fatal]
  - Leukopenia [Fatal]

NARRATIVE: CASE EVENT DATE: 20190712
